FAERS Safety Report 8374233-6 (Version None)
Quarter: 2012Q2

REPORT INFORMATION
  Report Type: 
  Country: None (occurrence: None)
  Receive Date: 20120521
  Receipt Date: 20120516
  Transmission Date: 20120825
  Serious: Yes (Death, Hospitalization, Disabling)
  Sender: FDA-Public Use
  Company Number: US-MERCK-1205USA02829

PATIENT
  Age: 71 Year
  Sex: Female

DRUGS (1)
  1. FOSAMAX [Suspect]
     Route: 048
     Dates: start: 19960101

REACTIONS (6)
  - DEATH [None]
  - LOW TURNOVER OSTEOPATHY [None]
  - PAIN [None]
  - OSTEOPOROSIS [None]
  - STRESS FRACTURE [None]
  - FEMUR FRACTURE [None]
